FAERS Safety Report 12589553 (Version 1)
Quarter: 2016Q3

REPORT INFORMATION
  Report Type: Spontaneous
  Country: US (occurrence: US)
  Receive Date: 20160725
  Receipt Date: 20160725
  Transmission Date: 20161109
  Serious: Yes (Other)
  Sender: FDA-Public Use
  Company Number: US-BAYER-2016-139206

PATIENT
  Sex: Male

DRUGS (2)
  1. CIPRO [Suspect]
     Active Substance: CIPROFLOXACIN HYDROCHLORIDE
     Indication: ABSCESS LIMB
     Dosage: 1500 MG, QD
     Dates: end: 20160109
  2. CIPRO [Suspect]
     Active Substance: CIPROFLOXACIN HYDROCHLORIDE
     Indication: ABSCESS LIMB
     Dosage: 1000 MG, QD
     Dates: start: 20151013, end: 20151015

REACTIONS (3)
  - Pseudomonas infection [None]
  - Therapy change [None]
  - Drug ineffective [None]
